FAERS Safety Report 18873899 (Version 4)
Quarter: 2021Q1

REPORT INFORMATION
  Report Type: Report from Study
  Country: CA (occurrence: CA)
  Receive Date: 20210210
  Receipt Date: 20210310
  Transmission Date: 20210420
  Serious: Yes (Hospitalization, Other)
  Sender: FDA-Public Use
  Company Number: CA-B.I. PHARMACEUTICALS,INC./RIDGEFIELD-2021-BI-076546

PATIENT
  Age: 49 Year
  Sex: Female

DRUGS (2)
  1. GILOTRIF [Suspect]
     Active Substance: AFATINIB
     Indication: LUNG CANCER METASTATIC
     Dosage: 40 MG
     Route: 048
     Dates: start: 20210109
  2. GILOTRIF [Suspect]
     Active Substance: AFATINIB
     Route: 048
     Dates: start: 202102

REACTIONS (21)
  - Musculoskeletal chest pain [Not Recovered/Not Resolved]
  - Oral mucosal blistering [Recovered/Resolved]
  - Oxygen saturation decreased [Unknown]
  - Fatigue [Recovered/Resolved]
  - Rash [Recovering/Resolving]
  - Chills [Not Recovered/Not Resolved]
  - Nausea [Recovered/Resolved]
  - Dry mouth [Not Recovered/Not Resolved]
  - Mouth ulceration [Recovered/Resolved]
  - Palpitations [Recovered/Resolved]
  - Dysphagia [Unknown]
  - Taste disorder [Recovering/Resolving]
  - Dyspnoea [Unknown]
  - Dry mouth [Recovering/Resolving]
  - Dermatitis acneiform [Recovered/Resolved]
  - Abdominal pain [Not Recovered/Not Resolved]
  - Eating disorder [Not Recovered/Not Resolved]
  - Pulmonary oedema [Not Recovered/Not Resolved]
  - Diarrhoea [Recovered/Resolved]
  - Vomiting [Recovered/Resolved]
  - Throat irritation [Recovered/Resolved]

NARRATIVE: CASE EVENT DATE: 20210219
